FAERS Safety Report 20657583 (Version 1)
Quarter: 2022Q1

REPORT INFORMATION
  Report Type: Spontaneous
  Country: US (occurrence: US)
  Receive Date: 20220331
  Receipt Date: 20220331
  Transmission Date: 20220423
  Serious: No
  Sender: FDA-Public Use
  Company Number: US-SA-SAC20220325000607

PATIENT
  Age: 62 Year
  Sex: Female

DRUGS (8)
  1. DUPIXENT [Suspect]
     Active Substance: DUPILUMAB
     Indication: Dermatitis atopic
     Route: 058
  2. CARNITINE [Concomitant]
     Active Substance: CARNITINE
  3. SELENIUM [Concomitant]
     Active Substance: SELENIUM
     Dosage: 200 UG
  4. ASCORBIC ACID [Concomitant]
     Active Substance: ASCORBIC ACID
     Dosage: 1000 MG
  5. QUERCETIN [Concomitant]
     Active Substance: QUERCETIN
  6. VITAMIN B COMPLEX [Concomitant]
     Active Substance: CYANOCOBALAMIN\DEXPANTHENOL\NIACINAMIDE\PYRIDOXINE HYDROCHLORIDE\RIBOFLAVIN 5^-PHOSPHATE SODIUM\THIA
  7. OMEGA GUARD [Concomitant]
  8. COENZYME Q10 [Concomitant]
     Active Substance: DIETARY SUPPLEMENT\UBIDECARENONE
     Dosage: 100 MG

REACTIONS (4)
  - Dermatitis atopic [Unknown]
  - Dry eye [Unknown]
  - Rash [Unknown]
  - Eye pruritus [Unknown]
